FAERS Safety Report 8622723-0 (Version None)
Quarter: 2012Q3

REPORT INFORMATION
  Report Type: 
  Country: None (occurrence: None)
  Receive Date: 20120827
  Receipt Date: 20120821
  Transmission Date: 20120928
  Serious: Yes (Hospitalization)
  Sender: FDA-Public Use
  Company Number: US-JNJFOC-20120112140

PATIENT
  Sex: Female
  Weight: 39.5 kg

DRUGS (8)
  1. FAMOTIDINE [Concomitant]
  2. METAMUCIL-2 [Concomitant]
  3. IRON [Concomitant]
  4. MULTIPLE VITAMIN [Concomitant]
  5. REMICADE [Suspect]
     Indication: INFLAMMATORY BOWEL DISEASE
     Route: 042
     Dates: start: 20080115, end: 20080908
  6. ADALIMUMAB [Concomitant]
     Dates: start: 20080115, end: 20081103
  7. OXYCODONE HCL [Concomitant]
  8. CALCIUM CITRATE [Concomitant]

REACTIONS (1)
  - ILEUS [None]
